FAERS Safety Report 23910795 (Version 2)
Quarter: 2024Q4

REPORT INFORMATION
  Report Type: Spontaneous
  Country: US (occurrence: US)
  Receive Date: 20240528
  Receipt Date: 20241125
  Transmission Date: 20250114
  Serious: No
  Sender: AVADEL CNS PHARMACEUTICALS, LLC
  Company Number: US-AVADEL CNS PHARMACEUTICALS, LLC-2024AVA00403

PATIENT
  Sex: Female

DRUGS (11)
  1. LUMRYZ [Suspect]
     Active Substance: SODIUM OXYBATE
     Indication: Narcolepsy
     Dosage: 4.5 G
     Route: 048
     Dates: start: 202403, end: 2024
  2. LUMRYZ [Suspect]
     Active Substance: SODIUM OXYBATE
     Indication: Cataplexy
  3. LUMRYZ [Suspect]
     Active Substance: SODIUM OXYBATE
     Indication: Narcolepsy
     Dosage: 7.5 G, ONCE NIGHTLY
     Route: 048
     Dates: start: 2024
  4. LUMRYZ [Suspect]
     Active Substance: SODIUM OXYBATE
     Indication: Cataplexy
  5. FAMOTIDINE [Concomitant]
     Active Substance: FAMOTIDINE
  6. GEMTESA [Concomitant]
     Active Substance: VIBEGRON
  7. MAGNESIUM [Concomitant]
     Active Substance: MAGNESIUM
  8. METHOTREXATE [Concomitant]
     Active Substance: METHOTREXATE
  9. OMEPRAZOLE [Concomitant]
     Active Substance: OMEPRAZOLE
  10. VYVANSE [Concomitant]
     Active Substance: LISDEXAMFETAMINE DIMESYLATE
  11. TALTZ [Concomitant]
     Active Substance: IXEKIZUMAB

REACTIONS (8)
  - Initial insomnia [Unknown]
  - Insomnia [Not Recovered/Not Resolved]
  - Coating in mouth [Not Recovered/Not Resolved]
  - Nocturia [Unknown]
  - Dizziness [Unknown]
  - Nausea [Unknown]
  - Paranoia [Not Recovered/Not Resolved]
  - Drug effect less than expected [Unknown]

NARRATIVE: CASE EVENT DATE: 20240101
